FAERS Safety Report 9290705 (Version 2)
Quarter: 2014Q1

REPORT INFORMATION
  Report Type: Spontaneous
  Country: DE (occurrence: DE)
  Receive Date: 20130515
  Receipt Date: 20140305
  Transmission Date: 20141002
  Serious: Yes (Death, Life-Threatening, Hospitalization, Other)
  Sender: FDA-Public Use
  Company Number: DE-B.I. PHARMACEUTICALS,INC./RIDGEFIELD-2013-BI-13700GD

PATIENT
  Age: 75 Year
  Sex: Male

DRUGS (1)
  1. PRADAXA [Suspect]
     Indication: ATRIAL FIBRILLATION
     Route: 065

REACTIONS (8)
  - Shock haemorrhagic [Fatal]
  - Haemorrhage [Fatal]
  - Coagulopathy [Fatal]
  - Loss of consciousness [Unknown]
  - Traumatic haemothorax [Unknown]
  - Road traffic accident [Unknown]
  - Injury [Unknown]
  - Cardiovascular disorder [Unknown]
